FAERS Safety Report 5466180-4 (Version None)
Quarter: 2007Q3

REPORT INFORMATION
  Report Type: 
  Country: None (occurrence: None)
  Receive Date: 20070924
  Receipt Date: 20070917
  Transmission Date: 20080115
  Serious: Yes (Hospitalization)
  Sender: FDA-Public Use
  Company Number: CA-MERCK-0709CAN00077

PATIENT
  Sex: Female

DRUGS (6)
  1. FOSAMAX [Suspect]
     Indication: OSTEOPENIA
     Route: 048
     Dates: start: 20001001
  2. FOSAMAX [Suspect]
     Route: 048
     Dates: end: 20070916
  3. CALCIUM (UNSPECIFIED) [Concomitant]
     Route: 065
  4. VITAMIN D (UNSPECIFIED) [Concomitant]
     Route: 065
  5. LORAZEPAM [Concomitant]
     Route: 065
  6. HYDROCHLOROTHIAZIDE AND SPIRONOLACTONE [Concomitant]
     Indication: HYPERTENSION
     Route: 065

REACTIONS (7)
  - BLEPHARITIS [None]
  - ECZEMA [None]
  - HEADACHE [None]
  - LABYRINTHITIS [None]
  - MUSCLE SPASMS [None]
  - NAUSEA [None]
  - OSTEOPOROSIS [None]
